FAERS Safety Report 20264047 (Version 1)
Quarter: 2021Q4

REPORT INFORMATION
  Report Type: Spontaneous
  Country: PR (occurrence: US)
  Receive Date: 20211231
  Receipt Date: 20211231
  Transmission Date: 20220303
  Serious: Yes (Hospitalization, Other)
  Sender: FDA-Public Use
  Company Number: PR-GLAXOSMITHKLINE-USCH2021AMR092393

PATIENT
  Age: 28 Year
  Sex: Male

DRUGS (3)
  1. ADVIL [Suspect]
     Active Substance: IBUPROFEN
     Indication: Product used for unknown indication
     Dosage: 2 DF
     Dates: start: 20211223
  2. PFIZER-BIONTECH COVID-19 VACCINE [Suspect]
     Active Substance: TOZINAMERAN
     Indication: COVID-19 immunisation
     Dosage: UNK
     Dates: start: 202105, end: 202105
  3. PFIZER-BIONTECH COVID-19 VACCINE [Suspect]
     Active Substance: TOZINAMERAN
     Dosage: UNK
     Dates: start: 20210614, end: 20210614

REACTIONS (17)
  - Syncope [Unknown]
  - Skin discolouration [Unknown]
  - Lip discolouration [Unknown]
  - Hyperhidrosis [Unknown]
  - COVID-19 [Unknown]
  - Hypotension [Unknown]
  - Dehydration [Unknown]
  - Nausea [Unknown]
  - Cough [Unknown]
  - Catatonia [Unknown]
  - Nail discolouration [Unknown]
  - Asthenia [Unknown]
  - Disorientation [Unknown]
  - Gait inability [Unknown]
  - Hypersomnia [Unknown]
  - Decreased appetite [Unknown]
  - Ageusia [Unknown]

NARRATIVE: CASE EVENT DATE: 20211223
